FAERS Safety Report 11106750 (Version 1)
Quarter: 2015Q2

REPORT INFORMATION
  Report Type: Spontaneous
  Country: None (occurrence: None)
  Receive Date: 20150511
  Receipt Date: 20150511
  Transmission Date: 20150821
  Serious: Yes (Hospitalization)
  Sender: FDA-Public Use
  Company Number: None

PATIENT
  Age: 32 Day
  Sex: Female
  Weight: 47.63 kg

DRUGS (1)
  1. MONISTAT [Suspect]
     Active Substance: MICONAZOLE NITRATE
     Route: 067

REACTIONS (5)
  - Haemorrhage [None]
  - Burning sensation [None]
  - Swelling [None]
  - Gait disturbance [None]
  - Blister [None]

NARRATIVE: CASE EVENT DATE: 20150508
